FAERS Safety Report 15171497 (Version 2)
Quarter: 2019Q1

REPORT INFORMATION
  Report Type: Report from Study
  Country: None (occurrence: US)
  Receive Date: 20180720
  Receipt Date: 20190123
  Transmission Date: 20190417
  Serious: Yes (Other)
  Sender: FDA-Public Use
  Company Number: US-ABBVIE-18K-163-2420373-00

PATIENT
  Age: 54 Year
  Sex: Male

DRUGS (1)
  1. HUMIRA [Suspect]
     Active Substance: ADALIMUMAB
     Indication: RHEUMATOID ARTHRITIS
     Route: 058
     Dates: end: 201708

REACTIONS (12)
  - Foot deformity [Not Recovered/Not Resolved]
  - Grip strength decreased [Unknown]
  - Gastroenteritis viral [Recovered/Resolved]
  - Exostosis [Not Recovered/Not Resolved]
  - Mobility decreased [Unknown]
  - Fibromyalgia [Not Recovered/Not Resolved]
  - Pain [Recovering/Resolving]
  - Finger deformity [Not Recovered/Not Resolved]
  - Sensitivity to weather change [Recovering/Resolving]
  - Infection transmission via personal contact [Not Recovered/Not Resolved]
  - Cervical cord compression [Not Recovered/Not Resolved]
  - Stress [Unknown]

NARRATIVE: CASE EVENT DATE: 20180714
